FAERS Safety Report 7641878-8 (Version None)
Quarter: 2011Q3

REPORT INFORMATION
  Report Type: 
  Country: None (occurrence: None)
  Receive Date: 20110728
  Receipt Date: 20110722
  Transmission Date: 20111222
  Serious: Yes (Other)
  Sender: FDA-Public Use
  Company Number: FR-ROCHE-792187

PATIENT
  Sex: Male

DRUGS (2)
  1. CELLCEPT [Suspect]
     Route: 048
     Dates: start: 20110325, end: 20110630
  2. VALGANCICLOVIR [Suspect]
     Route: 048
     Dates: start: 20110325, end: 20110711

REACTIONS (1)
  - AGRANULOCYTOSIS [None]
